FAERS Safety Report 23986153 (Version 1)
Quarter: 2024Q2

REPORT INFORMATION
  Report Type: Spontaneous
  Country: JO (occurrence: JO)
  Receive Date: 20240618
  Receipt Date: 20240618
  Transmission Date: 20240716
  Serious: Yes (Disabling, Other)
  Sender: FDA-Public Use
  Company Number: JO-002147023-NVSC2024JO122772

PATIENT

DRUGS (1)
  1. RUXOLITINIB [Suspect]
     Active Substance: RUXOLITINIB
     Indication: Myelofibrosis
     Dosage: 5 MG, BID ((4 PILLS TWICE A DAY) 4*2)
     Route: 048

REACTIONS (2)
  - Bone marrow failure [Unknown]
  - Leukocytosis [Unknown]
